FAERS Safety Report 17993851 (Version 2)
Quarter: 2020Q3

REPORT INFORMATION
  Report Type: Spontaneous
  Country: US (occurrence: US)
  Receive Date: 20200708
  Receipt Date: 20200716
  Transmission Date: 20201103
  Serious: No
  Sender: FDA-Public Use
  Company Number: US-BAYER-2020-136361

PATIENT
  Sex: Female

DRUGS (5)
  1. LINZESS [Concomitant]
     Active Substance: LINACLOTIDE
     Indication: CONSTIPATION
     Dosage: 72 ?G
     Dates: start: 201202
  2. MIRALAX [Suspect]
     Active Substance: POLYETHYLENE GLYCOL 3350
     Indication: CONSTIPATION
     Dosage: UNK
     Dates: start: 201202
  3. LAXATIVE [BISACODYL] [Concomitant]
     Active Substance: BISACODYL
  4. CORRECTOL 50 PLUS [Concomitant]
  5. SMOOTH MOVE [Concomitant]

REACTIONS (1)
  - Abdominal pain upper [None]
